FAERS Safety Report 4661040-0 (Version None)
Quarter: 2005Q2

REPORT INFORMATION
  Report Type: 
  Country: None (occurrence: None)
  Receive Date: 20050511
  Receipt Date: 20050506
  Transmission Date: 20051028
  Serious: Yes (Other)
  Sender: FDA-Public Use
  Company Number: 2005-01008

PATIENT
  Age: 77 Year
  Sex: Male
  Weight: 90.7 kg

DRUGS (1)
  1. INTEGRILIN [Suspect]
     Indication: CORONARY ANGIOPLASTY
     Dates: start: 20050505, end: 20050506

REACTIONS (7)
  - BRADYCARDIA [None]
  - CHEST PAIN [None]
  - CORONARY ARTERY STENOSIS [None]
  - ELECTROCARDIOGRAM ST SEGMENT ABNORMAL [None]
  - HAEMOGLOBIN DECREASED [None]
  - HYPOTENSION [None]
  - PLEURISY [None]
